FAERS Safety Report 18067336 (Version 1)
Quarter: 2020Q3

REPORT INFORMATION
  Report Type: Spontaneous
  Country: IT (occurrence: IT)
  Receive Date: 20200724
  Receipt Date: 20200724
  Transmission Date: 20201103
  Serious: Yes (Other)
  Sender: FDA-Public Use
  Company Number: IT-AMGEN-ITASP2020118256

PATIENT
  Age: 46 Year
  Sex: Female
  Weight: 78 kg

DRUGS (3)
  1. XGEVA [Suspect]
     Active Substance: DENOSUMAB
     Indication: PROPHYLAXIS
     Dosage: 120 MILLIGRAM
     Route: 030
     Dates: start: 20180401, end: 20200410
  2. PERJETA [Suspect]
     Active Substance: PERTUZUMAB
     Indication: BREAST CANCER
     Dosage: 420 MILLIGRAM
     Route: 042
     Dates: start: 20180401, end: 20200410
  3. HERCEPTIN [Suspect]
     Active Substance: TRASTUZUMAB
     Indication: BREAST CANCER
     Dosage: UNK
     Route: 042
     Dates: start: 20180401, end: 20200410

REACTIONS (1)
  - Dehiscence [Recovering/Resolving]

NARRATIVE: CASE EVENT DATE: 20200601
